FAERS Safety Report 5165245-4 (Version None)
Quarter: 2006Q4

REPORT INFORMATION
  Report Type: 
  Country: None (occurrence: None)
  Receive Date: 20061124
  Receipt Date: 20061114
  Transmission Date: 20070319
  Serious: Yes (Life-Threatening, Hospitalization)
  Sender: FDA-Public Use
  Company Number: 2006140963

PATIENT
  Age: 52 Year
  Sex: Male

DRUGS (4)
  1. ZITHROMAX [Suspect]
     Indication: RESPIRATORY TRACT INFECTION
     Dosage: 500 MG (500 MG, 1 IN 1 D), ORAL
     Route: 048
     Dates: start: 20060704
  2. DEPAKENE [Concomitant]
  3. LORMETAZEPAM (LORMETAZEPAM) [Concomitant]
  4. NEORAL (CICLOSPRORIN) [Concomitant]

REACTIONS (2)
  - DRUG INTERACTION [None]
  - MYOCARDIAL INFARCTION [None]
